FAERS Safety Report 21666164 (Version 1)
Quarter: 2022Q4

REPORT INFORMATION
  Report Type: Spontaneous
  Country: US (occurrence: US)
  Receive Date: 20221201
  Receipt Date: 20221201
  Transmission Date: 20230112
  Serious: No
  Sender: FDA-Public Use
  Company Number: US-UNITED THERAPEUTICS-UNT-2022-028650

PATIENT
  Age: 67 Year
  Sex: Female
  Weight: 110.7 kg

DRUGS (10)
  1. REMODULIN [Suspect]
     Active Substance: TREPROSTINIL
     Indication: Pulmonary arterial hypertension
     Dosage: 0.002 ?G/KG, CONTINUING
     Route: 041
     Dates: start: 20221018
  2. REMODULIN [Suspect]
     Active Substance: TREPROSTINIL
     Dosage: 0.010 ?G/KG, CONTINUING (AT RATE OF 29 ML/24 HRS)
     Route: 041
     Dates: start: 20221027
  3. TORSEMIDE [Concomitant]
     Active Substance: TORSEMIDE
     Indication: Pulmonary hypertension
     Dosage: 40 MG, QD
     Route: 048
  4. TORSEMIDE [Concomitant]
     Active Substance: TORSEMIDE
     Indication: Product used for unknown indication
  5. UMECLIDINIUM [Concomitant]
     Active Substance: UMECLIDINIUM
     Indication: Product used for unknown indication
     Dosage: 1 PUFF, QD
  6. ALBUTEROL SULFATE [Concomitant]
     Active Substance: ALBUTEROL SULFATE
     Indication: Wheezing
     Dosage: 90 ?G (2 PUFFS), Q6H
     Dates: start: 20210908
  7. ALBUTEROL SULFATE [Concomitant]
     Active Substance: ALBUTEROL SULFATE
     Indication: Dyspnoea
  8. BREO ELLIPTA [Concomitant]
     Active Substance: FLUTICASONE FUROATE\VILANTEROL TRIFENATATE
     Indication: Product used for unknown indication
     Dosage: 1 INHALATION, QD
  9. FLUTICASONE [Concomitant]
     Active Substance: FLUTICASONE
     Indication: Product used for unknown indication
     Dosage: 25 ?G, QD
     Dates: start: 20210908
  10. SODIUM CHLORIDE [Concomitant]
     Active Substance: SODIUM CHLORIDE
     Indication: Product used for unknown indication
     Dosage: 10 ML
     Route: 041
     Dates: start: 20210908

REACTIONS (14)
  - Headache [Unknown]
  - Pain in jaw [Recovered/Resolved]
  - Restless legs syndrome [Unknown]
  - Rales [Recovering/Resolving]
  - Injection site extravasation [Recovered/Resolved]
  - Oedema peripheral [Unknown]
  - Injection site rash [Unknown]
  - Injection site bruising [Unknown]
  - Injection site erythema [Unknown]
  - Contusion [Unknown]
  - Dyspnoea exertional [Unknown]
  - Electrolyte imbalance [Unknown]
  - Muscle spasms [Unknown]
  - Muscle discomfort [Unknown]

NARRATIVE: CASE EVENT DATE: 20221001
